FAERS Safety Report 11505931 (Version 1)
Quarter: 2015Q3

REPORT INFORMATION
  Report Type: Spontaneous
  Country: US (occurrence: US)
  Receive Date: 20150915
  Receipt Date: 20150915
  Transmission Date: 20151125
  Serious: No
  Sender: FDA-Public Use
  Company Number: US-ROCHE-758392

PATIENT
  Age: 57 Year
  Sex: Male
  Weight: 108.4 kg

DRUGS (3)
  1. PEGASYS [Suspect]
     Active Substance: PEGINTERFERON ALFA-2A
     Indication: HEPATITIS C
     Dosage: FORM: PRE-FILLED SYRINGE
     Route: 058
  2. DIOVAN [Concomitant]
     Active Substance: VALSARTAN
     Route: 065
  3. RIBAVIRIN. [Suspect]
     Active Substance: RIBAVIRIN
     Indication: HEPATITIS C
     Dosage: DOSE: 800 MG IN THE MORNING AND 400 MG AT NIGHT
     Route: 048

REACTIONS (4)
  - Weight decreased [Unknown]
  - Product quality issue [Unknown]
  - Injury associated with device [Unknown]
  - Underdose [Unknown]

NARRATIVE: CASE EVENT DATE: 201012
